FAERS Safety Report 4925488-9 (Version None)
Quarter: 2006Q1

REPORT INFORMATION
  Report Type: 
  Country: None (occurrence: None)
  Receive Date: 20060228
  Receipt Date: 20050302
  Transmission Date: 20060701
  Serious: Yes (Other)
  Sender: FDA-Public Use
  Company Number: US-GLAXOSMITHKLINE-A0547985A

PATIENT
  Age: 49 Year
  Sex: Female
  Weight: 76.8 kg

DRUGS (9)
  1. LAMICTAL [Suspect]
     Indication: EPILEPSY
     Route: 048
     Dates: start: 20010601
  2. PAXIL [Suspect]
     Indication: DEPRESSION
     Route: 048
     Dates: start: 20020101, end: 20050201
  3. KEPPRA [Concomitant]
     Indication: EPILEPSY
     Dosage: 750MG TWICE PER DAY
     Route: 048
     Dates: start: 20010601
  4. LEVOTHROID [Concomitant]
     Indication: HYPOTHYROIDISM
     Dosage: 175MCG PER DAY
     Route: 048
  5. DEPO-PROVERA [Concomitant]
     Indication: MENOPAUSAL SYMPTOMS
     Route: 030
  6. ESTRADIOL [Concomitant]
     Indication: MENOPAUSAL SYMPTOMS
     Dosage: .5MG PER DAY
     Route: 048
  7. RANITIDINE [Concomitant]
     Dosage: 300MG PER DAY
     Route: 048
  8. CALCIUM GLUCONATE [Concomitant]
     Indication: OSTEOPENIA
     Dosage: 1TAB TWICE PER DAY
     Route: 048
     Dates: start: 20000101
  9. RESTASIS [Concomitant]
     Dosage: 1DROP TWICE PER DAY
     Route: 047

REACTIONS (7)
  - DRUG ERUPTION [None]
  - LEUKOCYTOCLASTIC VASCULITIS [None]
  - ORAL SOFT TISSUE DISORDER [None]
  - RASH GENERALISED [None]
  - SKIN LESION [None]
  - SWELLING FACE [None]
  - URTICARIA [None]
